FAERS Safety Report 8377627-8 (Version None)
Quarter: 2012Q2

REPORT INFORMATION
  Report Type: 
  Country: None (occurrence: None)
  Receive Date: 20120522
  Receipt Date: 20120517
  Transmission Date: 20120825
  Serious: Yes (Hospitalization, Other)
  Sender: FDA-Public Use
  Company Number: US-BAYER-2011-014841

PATIENT
  Age: 27 Year
  Sex: Female
  Weight: 72.562 kg

DRUGS (4)
  1. COUMADIN [Concomitant]
     Dosage: UNK
     Dates: start: 20090201, end: 20100101
  2. YASMIN [Suspect]
     Indication: CONTRACEPTION
     Dosage: UNK
     Route: 048
     Dates: start: 20090601, end: 20090701
  3. ZITHROMAX [Concomitant]
     Dosage: UNK UNK, QD
     Route: 048
  4. ANTIBIOTICS [Concomitant]
     Indication: PNEUMONIA

REACTIONS (7)
  - ANXIETY [None]
  - EMOTIONAL DISTRESS [None]
  - DEEP VEIN THROMBOSIS [None]
  - PULMONARY EMBOLISM [None]
  - PAIN [None]
  - INJURY [None]
  - PULMONARY FIBROSIS [None]
